FAERS Safety Report 20843833 (Version 2)
Quarter: 2022Q2

REPORT INFORMATION
  Report Type: Spontaneous
  Country: US (occurrence: None)
  Receive Date: 20220518
  Receipt Date: 20220524
  Transmission Date: 20220721
  Serious: No
  Sender: FDA-Public Use
  Company Number: 2022A186777

PATIENT
  Sex: Male

DRUGS (1)
  1. BREZTRI [Suspect]
     Active Substance: BUDESONIDE\FORMOTEROL\GLYCOPYRROLATE
     Dosage: UNKNOWN
     Route: 055

REACTIONS (6)
  - Emphysema [Unknown]
  - Body height decreased [Unknown]
  - Feeling abnormal [Unknown]
  - Product packaging quantity issue [Unknown]
  - Drug delivery system issue [Not Recovered/Not Resolved]
  - Device leakage [Unknown]
